FAERS Safety Report 20974798 (Version 2)
Quarter: 2022Q2

REPORT INFORMATION
  Report Type: Report from Study
  Country: CN (occurrence: CN)
  Receive Date: 20220617
  Receipt Date: 20220620
  Transmission Date: 20220721
  Serious: Yes (Death)
  Sender: FDA-Public Use
  Company Number: CN-BAYER-2022A084815

PATIENT
  Age: 69 Year
  Sex: Female

DRUGS (2)
  1. STIVARGA [Suspect]
     Active Substance: REGORAFENIB
     Indication: Colorectal cancer
  2. TORIPALIMAB [Suspect]
     Active Substance: TORIPALIMAB
     Indication: Colorectal cancer

REACTIONS (2)
  - Myocarditis [Fatal]
  - Cardiac failure [Fatal]
